FAERS Safety Report 13110400 (Version 1)
Quarter: 2017Q1

REPORT INFORMATION
  Report Type: Spontaneous
  Country: US (occurrence: US)
  Receive Date: 20170112
  Receipt Date: 20170112
  Transmission Date: 20170428
  Serious: Yes (Hospitalization)
  Sender: FDA-Public Use
  Company Number: US-ROCHE-1098838

PATIENT
  Age: 56 Year
  Sex: Male

DRUGS (8)
  1. DEXTROSE 5% WATER [Concomitant]
     Route: 042
  2. ACTIVASE [Suspect]
     Active Substance: ALTEPLASE
     Route: 042
  3. HEPARIN [Concomitant]
     Active Substance: HEPARIN SODIUM
     Dosage: 5000 UNITS
     Route: 041
  4. OXYGEN PER NASAL CANNULA [Concomitant]
     Route: 065
  5. ACTIVASE [Suspect]
     Active Substance: ALTEPLASE
     Indication: CARDIOVASCULAR DISORDER
     Route: 042
  6. ACTIVASE [Suspect]
     Active Substance: ALTEPLASE
     Indication: ACUTE MYOCARDIAL INFARCTION
     Route: 042
  7. NITROGLYCERINE DRIP [Concomitant]
  8. ACTIVASE [Suspect]
     Active Substance: ALTEPLASE
     Route: 042

REACTIONS (3)
  - Arrhythmia [Unknown]
  - Ventricular tachycardia [Unknown]
  - Haemoptysis [Unknown]
